FAERS Safety Report 7724443-3 (Version None)
Quarter: 2011Q3

REPORT INFORMATION
  Report Type: 
  Country: None (occurrence: None)
  Receive Date: 20110901
  Receipt Date: 20110819
  Transmission Date: 20111222
  Serious: Yes (Death)
  Sender: FDA-Public Use
  Company Number: US-GLAXOSMITHKLINE-A0834659A

PATIENT
  Age: 66 Year
  Sex: Female
  Weight: 50 kg

DRUGS (7)
  1. FLEXERIL [Concomitant]
  2. BUSPAR [Concomitant]
  3. AVANDAMET [Suspect]
     Indication: DIABETES MELLITUS
     Dosage: 1TAB TWICE PER DAY
     Route: 048
     Dates: start: 20040101, end: 20080101
  4. SEROQUEL [Concomitant]
  5. ZOLOFT [Concomitant]
  6. LUNESTA [Concomitant]
  7. GEODON [Concomitant]

REACTIONS (2)
  - ARTERIOSCLEROSIS [None]
  - SUDDEN CARDIAC DEATH [None]
